FAERS Safety Report 12667121 (Version 1)
Quarter: 2016Q3

REPORT INFORMATION
  Report Type: Spontaneous
  Country: CA (occurrence: None)
  Receive Date: 20160818
  Receipt Date: 20160818
  Transmission Date: 20161109
  Serious: Yes (Other)
  Sender: FDA-Public Use
  Company Number: None

PATIENT
  Age: 66 Year
  Sex: Male
  Weight: 180 kg

DRUGS (1)
  1. APO-DICLOFENAC OPHTHALMIC 0.1%, 0.1% APOTEX INC. [Suspect]
     Active Substance: DICLOFENAC SODIUM
     Indication: EYE INFLAMMATION
     Route: 031
     Dates: start: 20160812, end: 20160813

REACTIONS (2)
  - Visual impairment [None]
  - Intraocular pressure increased [None]

NARRATIVE: CASE EVENT DATE: 20160813
